FAERS Safety Report 4552856-X (Version None)
Quarter: 2005Q1

REPORT INFORMATION
  Report Type: 
  Country: None (occurrence: None)
  Receive Date: 20050114
  Receipt Date: 20041012
  Transmission Date: 20050727
  Serious: Yes (Other)
  Sender: FDA-Public Use
  Company Number: DE-MERCK-0410DEU00411

PATIENT
  Age: 57 Year
  Sex: Male
  Weight: 84 kg

DRUGS (1)
  1. VIOXX [Suspect]
     Indication: PAIN
     Route: 048
     Dates: start: 20020501, end: 20040601

REACTIONS (4)
  - CARDIAC DISORDER [None]
  - MYOCARDIAL INFARCTION [None]
  - NEURODERMATITIS [None]
  - SKIN DISORDER [None]
